FAERS Safety Report 8009312-6 (Version None)
Quarter: 2011Q4

REPORT INFORMATION
  Report Type: 
  Country: None (occurrence: None)
  Receive Date: 20111227
  Receipt Date: 20111206
  Transmission Date: 20120403
  Serious: No
  Sender: FDA-Public Use
  Company Number: US-BAYER-2011-119296

PATIENT
  Sex: Male

DRUGS (1)
  1. DESONATE [Suspect]
     Indication: DERMATITIS DIAPER
     Dosage: UNK
     Route: 061
     Dates: start: 20111206

REACTIONS (2)
  - DERMATITIS DIAPER [None]
  - IRRITABILITY [None]
